FAERS Safety Report 21480980 (Version 1)
Quarter: 2022Q4

REPORT INFORMATION
  Report Type: Spontaneous
  Country: US (occurrence: US)
  Receive Date: 20221019
  Receipt Date: 20221019
  Transmission Date: 20230113
  Serious: Yes (Death, Life-Threatening, Hospitalization, Other)
  Sender: FDA-Public Use
  Company Number: US-HORIZON THERAPEUTICS-HZN-2022-008050

PATIENT

DRUGS (4)
  1. RAYOS [Suspect]
     Active Substance: PREDNISONE
     Indication: Crohn^s disease
     Dosage: 5 MG
     Route: 065
  2. RAYOS [Suspect]
     Active Substance: PREDNISONE
     Indication: Rheumatoid arthritis
  3. METHOTREXATE [Suspect]
     Active Substance: METHOTREXATE
     Indication: Crohn^s disease
     Dosage: 10 MG, WEEKLY
     Route: 065
  4. METHOTREXATE [Suspect]
     Active Substance: METHOTREXATE
     Indication: Rheumatoid arthritis

REACTIONS (3)
  - Acute hepatic failure [Fatal]
  - Herpes simplex reactivation [Fatal]
  - Hepatorenal syndrome [Fatal]
